FAERS Safety Report 23174981 (Version 3)
Quarter: 2024Q1

REPORT INFORMATION
  Report Type: Spontaneous
  Country: FR (occurrence: FR)
  Receive Date: 20231112
  Receipt Date: 20240208
  Transmission Date: 20240409
  Serious: Yes (Hospitalization)
  Sender: FDA-Public Use
  Company Number: None

PATIENT
  Age: 58 Year
  Sex: Male
  Weight: 83 kg

DRUGS (7)
  1. CISPLATIN [Suspect]
     Active Substance: CISPLATIN
     Indication: Cholangiocarcinoma
     Dosage: 49 MG, CYCLIC
     Route: 040
     Dates: start: 20231010, end: 20231017
  2. FUROSEMIDE [Suspect]
     Active Substance: FUROSEMIDE
     Indication: Oedema peripheral
     Dosage: 40 MG, ONCE/SINGLE
     Route: 048
     Dates: start: 20231018, end: 20231018
  3. GEMCITABINE [Suspect]
     Active Substance: GEMCITABINE
     Indication: Cholangiocarcinoma
     Dosage: 1939 MG, CYCLIC
     Route: 042
     Dates: start: 20231010, end: 20231017
  4. IMFINZI [Suspect]
     Active Substance: DURVALUMAB
     Indication: Cholangiocarcinoma
     Dosage: 1500 MG
     Route: 042
     Dates: start: 20231010, end: 20231010
  5. ONDANSETRON [Suspect]
     Active Substance: ONDANSETRON
     Indication: Premedication
     Dosage: 8 MG, CYCLIC
     Route: 048
     Dates: start: 20231010, end: 20231017
  6. ACETAMINOPHEN [Suspect]
     Active Substance: ACETAMINOPHEN
     Indication: Product used for unknown indication
     Dosage: 1G, ONCE/SINGLE
     Route: 048
     Dates: start: 20231015, end: 20231015
  7. PREDNISOLONE [Suspect]
     Active Substance: PREDNISOLONE
     Indication: Premedication
     Dosage: 80 MG, CYCLIC
     Route: 048
     Dates: start: 20231010, end: 20231017

REACTIONS (2)
  - Hepatic cytolysis [Recovering/Resolving]
  - Rash [Recovering/Resolving]

NARRATIVE: CASE EVENT DATE: 20231018
